FAERS Safety Report 8963372 (Version 2)
Quarter: 2013Q1

REPORT INFORMATION
  Report Type: Report from Study
  Country: FR (occurrence: FR)
  Receive Date: 20121214
  Receipt Date: 20130206
  Transmission Date: 20140127
  Serious: Yes (Hospitalization)
  Sender: FDA-Public Use
  Company Number: FR-PFIZER INC-2012309612

PATIENT
  Age: 70 Year
  Sex: Female
  Weight: 67 kg

DRUGS (2)
  1. TORISEL [Suspect]
     Dosage: 175 MG, SINGLE
     Dates: start: 20110113, end: 20110113
  2. ARANESP [Concomitant]
     Indication: PORPHYRIA ACUTE
     Dosage: UNK
     Route: 058
     Dates: start: 20110113

REACTIONS (1)
  - Febrile neutropenia [Unknown]
